FAERS Safety Report 6751614-5 (Version None)
Quarter: 2010Q2

REPORT INFORMATION
  Report Type: 
  Country: None (occurrence: None)
  Receive Date: 20100602
  Receipt Date: 20100526
  Transmission Date: 20101027
  Serious: Yes (Hospitalization)
  Sender: FDA-Public Use
  Company Number: A0784691A

PATIENT
  Age: 46 Year
  Sex: Female
  Weight: 111.4 kg

DRUGS (10)
  1. AVANDIA [Suspect]
     Indication: DIABETES MELLITUS
     Dosage: 8MG PER DAY
     Route: 048
     Dates: start: 20030207, end: 20070601
  2. ZOLOFT [Concomitant]
  3. GLUCOTROL XL [Concomitant]
  4. COREG [Concomitant]
  5. ASPIRIN [Concomitant]
  6. DIOVAN [Concomitant]
  7. PROTONIX [Concomitant]
  8. PRANDIN [Concomitant]
  9. NEXIUM [Concomitant]
  10. GLIPIZIDE [Concomitant]

REACTIONS (2)
  - CARDIAC FAILURE CONGESTIVE [None]
  - MYOCARDIAL ISCHAEMIA [None]
